FAERS Safety Report 8162255-X (Version None)
Quarter: 2012Q1

REPORT INFORMATION
  Report Type: 
  Country: None (occurrence: None)
  Receive Date: 20120224
  Receipt Date: 20120216
  Transmission Date: 20120608
  Serious: Yes (Other)
  Sender: FDA-Public Use
  Company Number: JP-ASTELLAS-2012JP001030

PATIENT
  Sex: Male

DRUGS (1)
  1. VESICARE [Suspect]
     Indication: NOCTURIA
     Dosage: 5 MG, UNKNOWN/D
     Route: 048
     Dates: start: 20120201, end: 20120201

REACTIONS (1)
  - LOSS OF CONSCIOUSNESS [None]
